FAERS Safety Report 15821216 (Version 1)
Quarter: 2019Q1

REPORT INFORMATION
  Report Type: Spontaneous
  Country: US (occurrence: US)
  Receive Date: 20190112
  Receipt Date: 20190112
  Transmission Date: 20190417
  Serious: Yes (Other)
  Sender: FDA-Public Use
  Company Number: None

PATIENT
  Age: 62 Year
  Sex: Female
  Weight: 67.5 kg

DRUGS (1)
  1. LOSARTAN TABS 100MG GENERIC FOR: COZARR TABS [Suspect]
     Active Substance: LOSARTAN
     Indication: HYPERTENSION
     Dosage: ?          QUANTITY:1 TABLET(S);?
     Route: 048
     Dates: start: 20181101, end: 20190111

REACTIONS (3)
  - Product contamination [None]
  - Recalled product [None]
  - Lung disorder [None]

NARRATIVE: CASE EVENT DATE: 20181202
